FAERS Safety Report 7011201 (Version 1)
Quarter: 2020Q3

REPORT INFORMATION
  Report Type: Report from Study
  Country: US (occurrence: US)
  Receive Date: 20090604
  Receipt Date: 20090604
  Transmission Date: 20201104
  Serious: Yes (Hospitalization)
  Sender: FDA-Public Use
  Company Number: US-ROCHE-635131

PATIENT
  Age: 47 Year
  Sex: Female
  Weight: 84.5 kg

DRUGS (1)
  1. IBANDRONIC ACID. [Suspect]
     Active Substance: IBANDRONIC ACID
     Dosage: TOTAL DOSE ADMINISTERED IN THIS COURSE: 1950 MG, SECOND COURSE
     Route: 065
     Dates: start: 20090410, end: 20090519

REACTIONS (1)
  - Thyroid cancer [Recovered/Resolved]

NARRATIVE: CASE EVENT DATE: 20090514
